FAERS Safety Report 15149746 (Version 3)
Quarter: 2019Q2

REPORT INFORMATION
  Report Type: Spontaneous
  Country: US (occurrence: US)
  Receive Date: 20180716
  Receipt Date: 20190401
  Transmission Date: 20190711
  Serious: No
  Sender: FDA-Public Use
  Company Number: US-VANDA PHARMACEUTICALS, INC-2018TASUS002258

PATIENT
  Age: 55 Year
  Sex: Female

DRUGS (4)
  1. HETLIOZ [Suspect]
     Active Substance: TASIMELTEON
     Indication: CIRCADIAN RHYTHM SLEEP DISORDER
     Dosage: 20 MG, ONCE PER DAY
     Route: 048
     Dates: start: 20170926
  2. SONATA [Concomitant]
     Active Substance: ZALEPLON
     Indication: SLEEP DISORDER
  3. XANAX [Concomitant]
     Active Substance: ALPRAZOLAM
     Indication: SLEEP DISORDER
  4. HETLIOZ [Suspect]
     Active Substance: TASIMELTEON
     Dosage: 20 MG, ONCE PER DAY
     Route: 048
     Dates: start: 20170926

REACTIONS (8)
  - Onychomycosis [Unknown]
  - Blood pressure increased [Unknown]
  - Heart rate increased [Unknown]
  - Insomnia [Unknown]
  - Middle insomnia [Unknown]
  - Abnormal dreams [Unknown]
  - Diabetes mellitus [Unknown]
  - Hunger [Unknown]
